FAERS Safety Report 22645392 (Version 2)
Quarter: 2023Q2

REPORT INFORMATION
  Report Type: Report from Study
  Country: US (occurrence: US)
  Receive Date: 20230627
  Receipt Date: 20230630
  Transmission Date: 20230722
  Serious: No
  Sender: FDA-Public Use
  Company Number: US-002147023-NVSC2023US144929

PATIENT
  Sex: Female

DRUGS (5)
  1. COSENTYX [Suspect]
     Active Substance: SECUKINUMAB
     Indication: Psoriasis
     Route: 058
  2. DUTASTERIDE [Suspect]
     Active Substance: DUTASTERIDE
     Indication: Psoriasis
     Dosage: UNK
     Route: 065
  3. QUINAPRIL [Suspect]
     Active Substance: QUINAPRIL
     Indication: Psoriasis
     Dosage: UNK
     Route: 065
  4. TRAMADOL [Suspect]
     Active Substance: TRAMADOL
     Indication: Psoriasis
     Dosage: UNK
     Route: 065
  5. BISOPROLOL [Suspect]
     Active Substance: BISOPROLOL
     Indication: Psoriasis
     Dosage: UNK
     Route: 065

REACTIONS (3)
  - Pruritus [Unknown]
  - Rash [Unknown]
  - Therapeutic product effect incomplete [Unknown]
